FAERS Safety Report 13891986 (Version 1)
Quarter: 2017Q3

REPORT INFORMATION
  Report Type: Report from Study
  Country: CR (occurrence: CR)
  Receive Date: 20170822
  Receipt Date: 20170822
  Transmission Date: 20171127
  Serious: Yes (Other)
  Sender: FDA-Public Use
  Company Number: CR-PFIZER INC-2017357174

PATIENT

DRUGS (2)
  1. METHOTREXATE. [Suspect]
     Active Substance: METHOTREXATE
     Dosage: UNK
  2. IBUPROFEN. [Interacting]
     Active Substance: IBUPROFEN
     Dosage: UNK

REACTIONS (2)
  - Drug interaction [Unknown]
  - Stomatitis [Unknown]
